FAERS Safety Report 4895526-0 (Version None)
Quarter: 2006Q1

REPORT INFORMATION
  Report Type: 
  Country: None (occurrence: None)
  Receive Date: 20060125
  Receipt Date: 20060116
  Transmission Date: 20060701
  Serious: Yes (Congenital Anomaly)
  Sender: FDA-Public Use
  Company Number: 2005166977

PATIENT
  Sex: Female

DRUGS (7)
  1. VIRACEPT [Suspect]
     Indication: HIV TEST POSITIVE
     Dosage: 2 TABLETS, ORAL
     Route: 048
     Dates: end: 20050526
  2. COMBIVIR [Suspect]
     Indication: HIV TEST POSITIVE
     Dosage: 600/300 MG (2 IN 1 D), ORAL
     Route: 048
     Dates: end: 20050906
  3. KALETRA [Suspect]
     Indication: HIV TEST POSITIVE
     Dates: start: 20050526, end: 20050906
  4. VALPROIC ACID [Suspect]
     Indication: ILL-DEFINED DISORDER
  5. METRONIDAZOLE [Concomitant]
  6. SULFAMETHOXAZOLE + TRIMETHOPRIM [Concomitant]
  7. FOLATE (FOLIC ACID) [Concomitant]

REACTIONS (8)
  - ARNOLD-CHIARI MALFORMATION [None]
  - ATRIAL SEPTAL DEFECT [None]
  - DRUG EXPOSURE DURING PREGNANCY [None]
  - MENINGOCELE [None]
  - MULTIPLE CONGENITAL ABNORMALITIES [None]
  - PREMATURE BABY [None]
  - PULMONARY ARTERY STENOSIS CONGENITAL [None]
  - VENTRICULAR SEPTAL DEFECT [None]
